FAERS Safety Report 8614412-3 (Version None)
Quarter: 2012Q3

REPORT INFORMATION
  Report Type: 
  Country: None (occurrence: None)
  Receive Date: 20120823
  Receipt Date: 20120821
  Transmission Date: 20120928
  Serious: Yes (Other)
  Sender: FDA-Public Use
  Company Number: SK-AMGEN-SVKSP2012039815

PATIENT
  Age: 44 Year
  Sex: Female
  Weight: 71 kg

DRUGS (8)
  1. VIGANTOL                           /00318501/ [Concomitant]
     Dosage: UNK UNK, QD
     Dates: start: 20111219
  2. CALCIUM [Concomitant]
     Dosage: 500 MG, UNK
  3. VITACALCIN [Concomitant]
     Dosage: 250 MG, BID
     Dates: start: 20111219
  4. PROLIA [Suspect]
     Indication: PRODUCT USED FOR UNKNOWN INDICATION
     Dosage: 60 MG, Q6MO
     Route: 048
     Dates: start: 20111213
  5. VITAMIN D                          /00318501/ [Concomitant]
  6. ROCALTROL [Concomitant]
     Dosage: 0.5 MUG, BID
     Dates: start: 20120306
  7. CALCIUM GLUCONATE [Concomitant]
     Dosage: 1 G, UNK
     Route: 042
     Dates: start: 20111219
  8. ALFA-D3 [Concomitant]
     Dosage: 1 MG, QD
     Dates: start: 20120209

REACTIONS (3)
  - TETANY [None]
  - HYPOCALCAEMIA [None]
  - MUSCLE SPASMS [None]
